FAERS Safety Report 18220570 (Version 2)
Quarter: 2020Q4

REPORT INFORMATION
  Report Type: Spontaneous
  Country: AU (occurrence: AU)
  Receive Date: 20200902
  Receipt Date: 20201006
  Transmission Date: 20210113
  Serious: Yes (Hospitalization, Other)
  Sender: FDA-Public Use
  Company Number: AU-GENERIC HEALTH PTY. LTD.-2020-05273

PATIENT
  Age: 38 Year
  Sex: Female

DRUGS (3)
  1. SERTRALINE [Suspect]
     Active Substance: SERTRALINE HYDROCHLORIDE
     Indication: PERINATAL DEPRESSION
     Dosage: 25 MILLIGRAM, QD (SINGLE DOSE ON DAY 1)
     Route: 065
  2. SERTRALINE [Interacting]
     Active Substance: SERTRALINE HYDROCHLORIDE
     Indication: ANXIETY
     Dosage: 50 MILLIGRAM, QD (SINGLE DOSE ON DAY 2)
     Route: 065
  3. FENUGREEK [TRIGONELLA FOENUM-GRAECUM] [Interacting]
     Active Substance: FENUGREEK LEAF\HERBALS
     Indication: LACTATION STIMULATION THERAPY
     Dosage: UNK UNK, QD
     Route: 048

REACTIONS (4)
  - Herbal interaction [Unknown]
  - Drug interaction [Unknown]
  - Maternal exposure during breast feeding [Unknown]
  - Serotonin syndrome [Recovered/Resolved]
